FAERS Safety Report 4416709-X (Version None)
Quarter: 2004Q3

REPORT INFORMATION
  Report Type: 
  Country: None (occurrence: None)
  Receive Date: 20040802
  Receipt Date: 20040720
  Transmission Date: 20050211
  Serious: Yes (Hospitalization)
  Sender: FDA-Public Use
  Company Number: 2004224980DE

PATIENT
  Age: 53 Year
  Sex: Female

DRUGS (4)
  1. ZYVOXID (LINEZOLID) SOLUTION, STERILE [Suspect]
     Indication: PNEUMONIA STAPHYLOCOCCAL
     Dosage: 600 MG, DAILY, IV DRIP
     Route: 041
     Dates: start: 20040705, end: 20040709
  2. RAMIPRIL [Suspect]
     Dosage: 10 MG, DAILY, ORAL
     Route: 048
     Dates: start: 20040712, end: 20040721
  3. CORDAREX [Concomitant]
  4. PANTOZOL (PANTOPRAZOLE SODIUM) [Concomitant]

REACTIONS (7)
  - ALANINE AMINOTRANSFERASE INCREASED [None]
  - ASPARTATE AMINOTRANSFERASE INCREASED [None]
  - BLOOD ALKALINE PHOSPHATASE INCREASED [None]
  - BLOOD BILIRUBIN INCREASED [None]
  - GAMMA-GLUTAMYLTRANSFERASE INCREASED [None]
  - OEDEMATOUS PANCREATITIS [None]
  - THROMBOCYTOPENIA [None]
